FAERS Safety Report 8341683-3 (Version None)
Quarter: 2012Q2

REPORT INFORMATION
  Report Type: 
  Country: None (occurrence: None)
  Receive Date: 20120507
  Receipt Date: 20120427
  Transmission Date: 20120825
  Serious: Yes (Death, Life-Threatening, Hospitalization, Disabling, Other)
  Sender: FDA-Public Use
  Company Number: US-PFIZER INC-2012058894

PATIENT
  Sex: Female
  Weight: 84.8 kg

DRUGS (10)
  1. PREMARIN [Concomitant]
     Indication: VULVOVAGINAL DRYNESS
     Dosage: UNK
     Dates: start: 20081120
  2. CELECOXIB [Suspect]
     Indication: OSTEOARTHRITIS
     Dosage: 100 MG, 2X/DAY
     Route: 048
     Dates: start: 20111007, end: 20111107
  3. CRESTOR [Concomitant]
     Indication: HYPERLIPIDAEMIA
     Dosage: UNK
     Dates: start: 20110222
  4. NEXIUM [Concomitant]
     Indication: PROPHYLAXIS
     Dosage: UNK
     Route: 048
     Dates: start: 20111007
  5. SPIRIVA [Concomitant]
     Indication: ASTHMA
     Dosage: UNK
     Dates: start: 20110718
  6. ANTIVERT [Concomitant]
     Indication: VERTIGO
     Dosage: UNK
     Dates: start: 20120204
  7. ASPIRIN [Concomitant]
     Indication: PROPHYLAXIS
     Dosage: UNK
     Dates: start: 20100201
  8. COREG [Concomitant]
     Indication: AUTONOMIC NEUROPATHY
     Dosage: UNK
     Dates: start: 20110803
  9. CELECOXIB [Suspect]
     Indication: RHEUMATOID ARTHRITIS
     Dosage: UNK, 2X/DAY
     Route: 048
     Dates: start: 20111108, end: 20120228
  10. PLAVIX [Concomitant]
     Indication: PROPHYLAXIS
     Dosage: UNK
     Dates: start: 20110222

REACTIONS (3)
  - URINARY TRACT INFECTION [None]
  - CARDIAC ARREST [None]
  - SEPSIS [None]
